FAERS Safety Report 17425941 (Version 2)
Quarter: 2020Q2

REPORT INFORMATION
  Report Type: Spontaneous
  Country: BR (occurrence: BR)
  Receive Date: 20200218
  Receipt Date: 20200407
  Transmission Date: 20200713
  Serious: Yes (Other)
  Sender: FDA-Public Use
  Company Number: BR-SA-2020SA038621

PATIENT
  Sex: Female

DRUGS (1)
  1. RANITIDINE HYDROCHLORIDE. [Suspect]
     Active Substance: RANITIDINE HYDROCHLORIDE
     Indication: HELICOBACTER INFECTION
     Dosage: UNK

REACTIONS (4)
  - Gastric cancer [Unknown]
  - Ill-defined disorder [Unknown]
  - Pancreatic disorder [Unknown]
  - Yellow skin [Unknown]

NARRATIVE: CASE EVENT DATE: 202003
